FAERS Safety Report 15736677 (Version 1)
Quarter: 2018Q4

REPORT INFORMATION
  Report Type: Spontaneous
  Country: TR (occurrence: TR)
  Receive Date: 20181218
  Receipt Date: 20181218
  Transmission Date: 20190205
  Serious: Yes (Other)
  Sender: FDA-Public Use
  Company Number: PHHY2018TR187764

PATIENT

DRUGS (1)
  1. BAKSO (BIFIDOBACTERIUM ANIMALIS\LACTOBACILLUS ACIDOPHILUS) [Suspect]
     Active Substance: PROBIOTICS NOS
     Indication: IRRITABLE BOWEL SYNDROME
     Dosage: UNK UNK, BID
     Route: 048
     Dates: start: 20181110, end: 20181112

REACTIONS (3)
  - Gastroenteritis [Recovered/Resolved]
  - Nausea [Recovered/Resolved]
  - Vomiting [Recovered/Resolved]

NARRATIVE: CASE EVENT DATE: 20181110
